FAERS Safety Report 11340767 (Version 1)
Quarter: 2015Q3

REPORT INFORMATION
  Report Type: Spontaneous
  Country: ZA (occurrence: ZA)
  Receive Date: 20150805
  Receipt Date: 20150805
  Transmission Date: 20151125
  Serious: Yes (Other)
  Sender: FDA-Public Use
  Company Number: ZA-ASTRAZENECA-2015SE74577

PATIENT

DRUGS (2)
  1. EPILIM [Interacting]
     Active Substance: VALPROATE SODIUM
     Route: 065
  2. MEROPENEM. [Suspect]
     Active Substance: MEROPENEM
     Route: 042

REACTIONS (2)
  - Inhibitory drug interaction [Unknown]
  - Seizure [Unknown]
